FAERS Safety Report 24744220 (Version 1)
Quarter: 2024Q4

REPORT INFORMATION
  Report Type: Spontaneous
  Country: FR (occurrence: FR)
  Receive Date: 20241217
  Receipt Date: 20241217
  Transmission Date: 20250114
  Serious: Yes (Death, Hospitalization, Other)
  Sender: FRESENIUS KABI
  Company Number: FR-FreseniusKabi-FK202418822

PATIENT
  Age: 62 Year
  Sex: Female

DRUGS (14)
  1. PROPOFOL [Suspect]
     Active Substance: PROPOFOL
     Indication: Sedation
     Dosage: FORM OF ADMINISTRATION - INFUSION
  2. PROPOFOL [Suspect]
     Active Substance: PROPOFOL
     Dosage: FORM OF ADMINISTRATION - INFUSION
  3. MILRINONE [Concomitant]
     Active Substance: MILRINONE
     Indication: Vasospasm
  4. ATROPINE [Concomitant]
     Active Substance: ATROPINE
     Indication: Bradycardia
  5. ISOPROTERENOL HYDROCHLORIDE [Concomitant]
     Active Substance: ISOPROTERENOL HYDROCHLORIDE
     Indication: Bradycardia
  6. MIDAZOLAM [Concomitant]
     Active Substance: MIDAZOLAM
     Indication: Sedation
  7. SUFENTANIL [Concomitant]
     Active Substance: SUFENTANIL
     Indication: Sedation
  8. MORPHINE [Concomitant]
     Active Substance: MORPHINE
     Indication: Sedation
  9. KETAMINE [Concomitant]
     Active Substance: KETAMINE
     Indication: Sedation
  10. NOREPINEPHRINE [Concomitant]
     Active Substance: NOREPINEPHRINE\NOREPINEPHRINE BITARTRATE
     Indication: Product used for unknown indication
  11. PIPERACILLIN SODIUM\TAZOBACTAM SODIUM [Concomitant]
     Active Substance: PIPERACILLIN SODIUM\TAZOBACTAM SODIUM
     Indication: Septic shock
  12. AMIKACIN [Concomitant]
     Active Substance: AMIKACIN
     Indication: Septic shock
  13. THIOPENTAL [Concomitant]
     Active Substance: THIOPENTAL
     Indication: Product used for unknown indication
  14. CISATRACURIUM [Concomitant]
     Active Substance: CISATRACURIUM
     Indication: Sedation

REACTIONS (2)
  - Propofol infusion syndrome [Fatal]
  - Cardiac arrest [Fatal]
